FAERS Safety Report 4326618-2 (Version None)
Quarter: 2004Q1

REPORT INFORMATION
  Report Type: 
  Country: None (occurrence: None)
  Receive Date: 20040325
  Receipt Date: 20040115
  Transmission Date: 20041129
  Serious: Yes (Hospitalization)
  Sender: FDA-Public Use
  Company Number: US062678

PATIENT
  Age: 68 Year
  Sex: Female

DRUGS (19)
  1. NEULASTA [Suspect]
     Indication: CHEMOTHERAPY
     Dosage: 6 MG, 1 IN 1 DAYS
     Dates: start: 20030821
  2. RITUXIMAB [Concomitant]
  3. VINCRISTINE [Concomitant]
  4. DOXORUBICIN HYDROCHLORIDE [Concomitant]
  5. CYCLOPHOSPHAMIDE [Concomitant]
  6. PREDNISONE [Concomitant]
  7. ARANESP [Concomitant]
  8. WARFARIN SODIUM [Concomitant]
  9. AUGMENTIN [Concomitant]
  10. DOLASETRON MESYLATE [Concomitant]
  11. DEXAMETHASONE [Concomitant]
  12. DIPHENHYDRAMINE HCL [Concomitant]
  13. CIMETIDINE HCL [Concomitant]
  14. ACETAMINOPHEN [Concomitant]
  15. SENOKOT [Concomitant]
  16. QUINAPRIL HYDROCHLORIDE [Concomitant]
  17. PROCHLORPERAZINE EDISYLATE [Concomitant]
  18. ONDANSETRON HCL [Concomitant]
  19. APREPITANT [Concomitant]

REACTIONS (17)
  - ANAEMIA [None]
  - ANOREXIA [None]
  - ASTHENIA [None]
  - CHILLS [None]
  - DRUG INEFFECTIVE [None]
  - FEBRILE NEUTROPENIA [None]
  - FEELING COLD [None]
  - INFLUENZA [None]
  - MOUTH ULCERATION [None]
  - NAUSEA [None]
  - NEUTROPENIA [None]
  - ORAL PAIN [None]
  - PRODUCTIVE COUGH [None]
  - PYREXIA [None]
  - SKIN TURGOR DECREASED [None]
  - VOMITING [None]
  - WEIGHT DECREASED [None]
